FAERS Safety Report 22212060 (Version 4)
Quarter: 2023Q2

REPORT INFORMATION
  Report Type: Spontaneous
  Country: US (occurrence: US)
  Receive Date: 20230414
  Receipt Date: 20230626
  Transmission Date: 20230721
  Serious: Yes (Hospitalization, Other)
  Sender: FDA-Public Use
  Company Number: US-ELI_LILLY_AND_COMPANY-US202304002219

PATIENT
  Age: 64 Year
  Sex: Male

DRUGS (2)
  1. TADALAFIL [Suspect]
     Active Substance: TADALAFIL
     Indication: Product used for unknown indication
     Dosage: 5 MG, DAILY
     Route: 048
     Dates: end: 20181001
  2. TADALAFIL [Suspect]
     Active Substance: TADALAFIL
     Dosage: 20 MG, ONE HOUR BEFORE SEX
     Route: 048
     Dates: end: 20181001

REACTIONS (6)
  - Cerebral haemorrhage [Recovering/Resolving]
  - Urinary tract infection [Unknown]
  - Haematuria [Unknown]
  - Blood pressure increased [Recovering/Resolving]
  - Oxygen saturation decreased [Unknown]
  - Hypogonadism [Unknown]

NARRATIVE: CASE EVENT DATE: 20180117
